FAERS Safety Report 9025165 (Version 1)
Quarter: 2013Q1

REPORT INFORMATION
  Report Type: Spontaneous
  Country: US (occurrence: US)
  Receive Date: 20130122
  Receipt Date: 20130122
  Transmission Date: 20140127
  Serious: Yes (Disabling, Other)
  Sender: FDA-Public Use
  Company Number: US-009507513-1301USA001935

PATIENT
  Age: 45 Year
  Sex: Male

DRUGS (7)
  1. SINGULAIR [Suspect]
     Indication: ASTHMA
  2. SINGULAIR [Suspect]
     Indication: NASAL POLYPS
  3. NASONEX [Suspect]
  4. SOLUPRED [Suspect]
  5. RHINOCORT [Suspect]
  6. AIROMIR [Suspect]
  7. SERETIDE [Suspect]

REACTIONS (2)
  - Ageusia [Unknown]
  - Anosmia [Unknown]
